FAERS Safety Report 19811180 (Version 2)
Quarter: 2022Q3

REPORT INFORMATION
  Report Type: Spontaneous
  Country: US (occurrence: None)
  Receive Date: 20210910
  Receipt Date: 20220816
  Transmission Date: 20221027
  Serious: No
  Sender: FDA-Public Use
  Company Number: US-ROCHE-2792348

PATIENT
  Age: 32 Year
  Sex: Female
  Weight: 72.277 kg

DRUGS (6)
  1. PEGASYS [Suspect]
     Active Substance: PEGINTERFERON ALFA-2A
     Indication: Thrombocytosis
     Dosage: STRENGTH: 180 MCG/ML SINGAL DOSE VIAL?ON 03/FEB/2021, SHE AGAIN RECEIVED PEGINTERFERON ALFA-2A.
     Route: 058
     Dates: start: 20210126
  2. PEGASYS [Suspect]
     Active Substance: PEGINTERFERON ALFA-2A
     Indication: Essential thrombocythaemia
  3. ASPIRIN [Concomitant]
     Active Substance: ASPIRIN
     Indication: Periarthritis
     Route: 048
     Dates: start: 20190319
  4. ASPIRIN [Concomitant]
     Active Substance: ASPIRIN
     Dates: start: 20200609
  5. ONDANSETRON [Concomitant]
     Active Substance: ONDANSETRON
     Indication: Nausea
     Dates: start: 20201230
  6. IRON [Concomitant]
     Active Substance: IRON

REACTIONS (4)
  - Pruritus [Not Recovered/Not Resolved]
  - Burning sensation [Not Recovered/Not Resolved]
  - Off label use [Unknown]
  - Maternal exposure during pregnancy [Unknown]

NARRATIVE: CASE EVENT DATE: 20210302
